FAERS Safety Report 12613292 (Version 1)
Quarter: 2016Q3

REPORT INFORMATION
  Report Type: Spontaneous
  Country: US (occurrence: None)
  Receive Date: 20160801
  Receipt Date: 20160801
  Transmission Date: 20161109
  Serious: No
  Sender: FDA-Public Use
  Company Number: None

PATIENT
  Age: 75 Year
  Sex: Female
  Weight: 73.48 kg

DRUGS (1)
  1. BOTOX [Suspect]
     Active Substance: ONABOTULINUMTOXINA
     Indication: TREMOR
     Dosage: 2 INJECTIONS 2 TIMES

REACTIONS (5)
  - Muscular weakness [None]
  - Gait disturbance [None]
  - Headache [None]
  - Musculoskeletal pain [None]
  - Muscle spasms [None]
